FAERS Safety Report 8067391 (Version 2)
Quarter: 2013Q1

REPORT INFORMATION
  Report Type: Spontaneous
  Country: US (occurrence: US)
  Receive Date: 20110803
  Receipt Date: 20130329
  Transmission Date: 20140127
  Serious: Yes (Death, Hospitalization)
  Sender: FDA-Public Use
  Company Number: US-GLAXOSMITHKLINE-A0700779A

PATIENT
  Age: 64 Year
  Sex: Female
  Weight: 59.1 kg

DRUGS (8)
  1. AVANDIA [Suspect]
     Indication: DIABETES MELLITUS
     Dosage: 4MG TWICE PER DAY
     Route: 048
     Dates: start: 200301, end: 200501
  2. GLUCOPHAGE [Concomitant]
     Dates: start: 20030108
  3. HUMALOG [Concomitant]
  4. GLARGINE [Concomitant]
  5. FUROSEMIDE [Concomitant]
  6. LIPITOR [Concomitant]
  7. CARTIA [Concomitant]
  8. TOPROL [Concomitant]

REACTIONS (11)
  - Cardiac failure [Unknown]
  - Cerebrovascular accident [Unknown]
  - Myocardial ischaemia [Unknown]
  - Myocardial infarction [Unknown]
  - Cerebral haemorrhage [Fatal]
  - Hypertension [Fatal]
  - Coronary artery disease [Unknown]
  - Cardiac failure congestive [Unknown]
  - Renal failure [Unknown]
  - Myocardial infarction [Unknown]
  - Pleural effusion [Unknown]
